FAERS Safety Report 21471199 (Version 1)
Quarter: 2022Q4

REPORT INFORMATION
  Report Type: Spontaneous
  Country: US (occurrence: US)
  Receive Date: 20221018
  Receipt Date: 20221018
  Transmission Date: 20230113
  Serious: No
  Sender: FDA-Public Use
  Company Number: US-ALLERGAN-2131885US

PATIENT
  Sex: Male

DRUGS (1)
  1. LINZESS [Suspect]
     Active Substance: LINACLOTIDE
     Indication: Product used for unknown indication
     Dosage: 145 ?G

REACTIONS (6)
  - Defaecation disorder [Unknown]
  - Pain [Recovering/Resolving]
  - Wrong technique in product usage process [Unknown]
  - Therapeutic response decreased [Unknown]
  - Dizziness [Unknown]
  - Product lot number issue [Unknown]
